FAERS Safety Report 9019337 (Version 2)
Quarter: 2013Q1

REPORT INFORMATION
  Report Type: Report from Study
  Country: FR (occurrence: FR)
  Receive Date: 20130118
  Receipt Date: 20130320
  Transmission Date: 20140127
  Serious: Yes (Hospitalization)
  Sender: FDA-Public Use
  Company Number: FR-B.I. PHARMACEUTICALS,INC./RIDGEFIELD-2012-EU-04009EU

PATIENT
  Age: 48 None
  Sex: Female
  Weight: 63 kg

DRUGS (6)
  1. DABIGATRAN [Suspect]
     Indication: HEART VALVE REPLACEMENT
  2. LACMITAL [Concomitant]
     Indication: PROPHYLAXIS
     Dosage: 225 MG
     Route: 048
  3. ACUPAN [Concomitant]
     Indication: PAIN
     Dates: start: 20120711, end: 20120716
  4. TRAMADOL [Concomitant]
     Indication: PAIN
     Dosage: 50 MG
     Route: 048
     Dates: start: 20120710, end: 20120719
  5. INEXIUM [Concomitant]
     Indication: PROPHYLAXIS AGAINST GASTROINTESTINAL ULCER
     Dosage: 20 MG
     Route: 048
     Dates: start: 20120710, end: 20120719
  6. IMOVANE [Concomitant]
     Indication: PROPHYLAXIS
     Dosage: 7.5 MG
     Route: 048
     Dates: start: 20120712, end: 20120719

REACTIONS (1)
  - Pericardial effusion [Recovered/Resolved]
